FAERS Safety Report 4957436-X (Version None)
Quarter: 2006Q1

REPORT INFORMATION
  Report Type: 
  Country: None (occurrence: None)
  Receive Date: 20060327
  Receipt Date: 20060308
  Transmission Date: 20060701
  Serious: Yes (Other)
  Sender: FDA-Public Use
  Company Number: 032-66

PATIENT
  Sex: 0

DRUGS (1)
  1. TEVETEN [Suspect]
     Indication: HYPERTENSION

REACTIONS (1)
  - RENAL IMPAIRMENT [None]
